FAERS Safety Report 5204387-1 (Version None)
Quarter: 2007Q1

REPORT INFORMATION
  Report Type: 
  Country: None (occurrence: None)
  Receive Date: 20070110
  Receipt Date: 20060314
  Transmission Date: 20070707
  Serious: No
  Sender: FDA-Public Use
  Company Number: US-BRISTOL-MYERS SQUIBB COMPANY-13314448

PATIENT

DRUGS (2)
  1. ABILIFY [Suspect]
     Dosage: DOSE VALUE:  2.5 MG IN THE MORNING, AD 10 MG IN THE EVENING.
  2. DEPAKOTE [Concomitant]

REACTIONS (1)
  - EXTRAPYRAMIDAL DISORDER [None]
